FAERS Safety Report 21986735 (Version 1)
Quarter: 2023Q1

REPORT INFORMATION
  Report Type: Spontaneous
  Country: US (occurrence: US)
  Receive Date: 20230213
  Receipt Date: 20230213
  Transmission Date: 20230417
  Serious: Yes (Other)
  Sender: FDA-Public Use
  Company Number: US-SANOFI-01483878

PATIENT
  Sex: Male

DRUGS (3)
  1. PLAVIX [Suspect]
     Active Substance: CLOPIDOGREL BISULFATE
  2. XALATAN [Concomitant]
     Active Substance: LATANOPROST
     Indication: Ocular hypertension
  3. ASPIRIN [Concomitant]
     Active Substance: ASPIRIN

REACTIONS (3)
  - Eye haemorrhage [Not Recovered/Not Resolved]
  - Post procedural haemorrhage [Unknown]
  - Dermal cyst [Not Recovered/Not Resolved]
